FAERS Safety Report 4606824-X (Version None)
Quarter: 2005Q1

REPORT INFORMATION
  Report Type: 
  Country: None (occurrence: None)
  Receive Date: 20050310
  Receipt Date: 20050301
  Transmission Date: 20050727
  Serious: Yes (Hospitalization)
  Sender: FDA-Public Use
  Company Number: FABR-11012

PATIENT
  Age: 71 Year
  Sex: Male
  Weight: 64.7 kg

DRUGS (8)
  1. FABRAZYME [Suspect]
     Indication: FABRY'S DISEASE
     Dosage: 70 M Q2WKS IV
     Route: 042
     Dates: start: 20031015
  2. PRAVACHOL [Concomitant]
  3. EPOGEN [Concomitant]
  4. FLOVENT [Concomitant]
  5. AMLODIPINE [Concomitant]
  6. ASPIRIN [Concomitant]
  7. PLAVIX [Concomitant]
  8. THIAMINE [Concomitant]

REACTIONS (7)
  - BLOOD CREATININE INCREASED [None]
  - BLOOD UREA INCREASED [None]
  - CLOSTRIDIUM COLITIS [None]
  - CONFUSIONAL STATE [None]
  - MYOCARDIAL INFARCTION [None]
  - PNEUMONIA [None]
  - VENTRICULAR TACHYCARDIA [None]
